FAERS Safety Report 9847740 (Version 1)
Quarter: 2014Q1

REPORT INFORMATION
  Report Type: Report from Study
  Country: CA (occurrence: CA)
  Receive Date: 20140128
  Receipt Date: 20140128
  Transmission Date: 20141002
  Serious: Yes (Other)
  Sender: FDA-Public Use
  Company Number: CA-ROCHE-1336306

PATIENT
  Sex: Female

DRUGS (10)
  1. RITUXAN [Suspect]
     Indication: RHEUMATOID ARTHRITIS
     Dosage: FREQUENCY: DAY 1 AND DAY 15?LAST DOSE RECEIVED ON 23/MAY/2013
     Route: 042
     Dates: start: 20090708
  2. FOLIC ACID [Concomitant]
  3. ACETAMINOPHEN [Concomitant]
     Indication: PREMEDICATION
     Route: 048
     Dates: start: 20090708
  4. DIPHENHYDRAMINE HCL [Concomitant]
     Indication: PREMEDICATION
     Route: 048
     Dates: start: 20090708
  5. METHYLPREDNISOLON [Concomitant]
     Indication: PREMEDICATION
     Route: 042
     Dates: start: 20090708
  6. NADOLOL [Concomitant]
     Route: 065
  7. RAMIPRIL [Concomitant]
     Route: 065
  8. TYLENOL #3 (CANADA) [Concomitant]
  9. PREDNISONE [Concomitant]
  10. METHOTREXATE [Concomitant]
     Route: 065

REACTIONS (2)
  - Proteinuria [Unknown]
  - Cataract [Unknown]
